FAERS Safety Report 10096150 (Version 1)
Quarter: 2014Q2

REPORT INFORMATION
  Report Type: Other
  Country: MY (occurrence: MY)
  Receive Date: 20140422
  Receipt Date: 20140422
  Transmission Date: 20141212
  Serious: Yes (Hospitalization, Other)
  Sender: FDA-Public Use
  Company Number: MY-ASTELLAS-2014US003828

PATIENT
  Age: 49 Year
  Sex: Male

DRUGS (5)
  1. PROGRAF [Suspect]
     Indication: IMMUNOSUPPRESSION
     Route: 048
     Dates: start: 20040614
  2. PREDNISOLONE [Concomitant]
     Indication: IMMUNOSUPPRESSION
     Route: 048
     Dates: start: 20040612
  3. CELLCEPT                           /01275102/ [Concomitant]
     Indication: IMMUNOSUPPRESSION
     Route: 048
     Dates: start: 20040612
  4. CELLCEPT                           /01275102/ [Concomitant]
     Route: 048
     Dates: start: 20040809
  5. CELLCEPT                           /01275102/ [Concomitant]
     Route: 048
     Dates: start: 20040828

REACTIONS (4)
  - Cholecystitis chronic [Recovering/Resolving]
  - Cytomegalovirus colitis [Recovering/Resolving]
  - Anaemia [Recovered/Resolved with Sequelae]
  - Dyspnoea exertional [Recovering/Resolving]
